FAERS Safety Report 6048055-5 (Version None)
Quarter: 2009Q1

REPORT INFORMATION
  Report Type: 
  Country: None (occurrence: None)
  Receive Date: 20090123
  Receipt Date: 20090114
  Transmission Date: 20090719
  Serious: Yes (Other)
  Sender: FDA-Public Use
  Company Number: US-PFIZER INC-2008098965

PATIENT
  Sex: Female

DRUGS (1)
  1. XALATAN [Suspect]
     Indication: GLAUCOMA
     Dosage: UNK
     Dates: start: 20070101

REACTIONS (2)
  - EXPIRED DRUG ADMINISTERED [None]
  - HIP ARTHROPLASTY [None]
